FAERS Safety Report 8221695-0 (Version None)
Quarter: 2012Q1

REPORT INFORMATION
  Report Type: 
  Country: None (occurrence: None)
  Receive Date: 20120320
  Receipt Date: 20120306
  Transmission Date: 20120608
  Serious: No
  Sender: FDA-Public Use
  Company Number: US-B.I. PHARMACEUTICALS,INC./RIDGEFIELD-2011-BP-06983BP

PATIENT
  Sex: Female

DRUGS (7)
  1. TRAMADOL HCL [Concomitant]
     Indication: BACK PAIN
  2. VITAMIN TAB [Concomitant]
     Indication: VITAMIN SUPPLEMENTATION
  3. TIKOSYN [Concomitant]
     Indication: ATRIAL FIBRILLATION
  4. METOPROLOL SUCCINATE [Concomitant]
     Indication: ATRIAL FIBRILLATION
  5. ASPIRIN [Concomitant]
     Indication: ATRIAL FIBRILLATION
  6. PRADAXA [Suspect]
     Indication: ATRIAL FIBRILLATION
     Dosage: 300 MG
     Route: 048
     Dates: start: 20101101
  7. LANOXIN [Concomitant]
     Indication: ATRIAL FIBRILLATION

REACTIONS (7)
  - DYSPEPSIA [None]
  - ABDOMINAL DISCOMFORT [None]
  - DIARRHOEA [None]
  - ASTHENIA [None]
  - FLATULENCE [None]
  - INCORRECT DOSE ADMINISTERED [None]
  - GLOSSODYNIA [None]
